FAERS Safety Report 4514676-1 (Version None)
Quarter: 2004Q4

REPORT INFORMATION
  Report Type: 
  Country: None (occurrence: None)
  Receive Date: 20041126
  Receipt Date: 20041117
  Transmission Date: 20050328
  Serious: Yes (Other)
  Sender: FDA-Public Use
  Company Number: GBWYE207417NOV04

PATIENT
  Age: 35 Year
  Sex: Female

DRUGS (1)
  1. EFEXOR XL (VENLAFAXINE HYDROCHLORIDE, CAPSULE, EXTENDED RELEASE) [Suspect]

REACTIONS (1)
  - EPILEPSY [None]
